FAERS Safety Report 23306253 (Version 1)
Quarter: 2023Q4

REPORT INFORMATION
  Report Type: Spontaneous
  Country: CA (occurrence: CA)
  Receive Date: 20231218
  Receipt Date: 20231218
  Transmission Date: 20240110
  Serious: Yes (Other)
  Sender: FDA-Public Use
  Company Number: CA-JNJFOC-20231233925

PATIENT
  Age: 59 Year
  Sex: Female

DRUGS (2)
  1. TYLENOL [Suspect]
     Active Substance: ACETAMINOPHEN
     Indication: Product used for unknown indication
     Route: 065
  2. ANAKINRA [Suspect]
     Active Substance: ANAKINRA
     Indication: Pericarditis
     Route: 058

REACTIONS (5)
  - Arthralgia [Unknown]
  - Nasopharyngitis [Unknown]
  - Pericarditis [Unknown]
  - Off label use [Unknown]
  - Drug hypersensitivity [Unknown]
